FAERS Safety Report 10006446 (Version 1)
Quarter: 2014Q1

REPORT INFORMATION
  Report Type: Spontaneous
  Country: US (occurrence: None)
  Receive Date: 20140312
  Receipt Date: 20140312
  Transmission Date: 20141002
  Serious: Yes (Disabling)
  Sender: FDA-Public Use
  Company Number: None

PATIENT
  Age: 3 Year
  Sex: Male
  Weight: 16.78 kg

DRUGS (1)
  1. MIRALAX [Suspect]
     Indication: CONSTIPATION
     Dosage: 1 CAPFUL TWICE DAILY TAKEN BY MOUTH
     Route: 048
     Dates: start: 20110323, end: 20140311

REACTIONS (4)
  - Cystitis [None]
  - Autism [None]
  - Developmental delay [None]
  - Encopresis [None]
